FAERS Safety Report 23008512 (Version 4)
Quarter: 2023Q4

REPORT INFORMATION
  Report Type: Spontaneous
  Country: GB (occurrence: GB)
  Receive Date: 20230929
  Receipt Date: 20231031
  Transmission Date: 20240109
  Serious: Yes (Other)
  Sender: FDA-Public Use
  Company Number: GB-LABORATORIOS LICONSA S.A.-2309GB06593

PATIENT

DRUGS (5)
  1. OMEPRAZOLE [Suspect]
     Active Substance: OMEPRAZOLE
     Indication: Hiatus hernia
     Dosage: 20 MG, QD (ONE 20MG TAB A DAY FOR AROUND 3 WEEKS)
     Dates: start: 20230629
  2. OMEPRAZOLE [Suspect]
     Active Substance: OMEPRAZOLE
     Indication: Duodenal ulcer
     Dosage: 4 DOSAGE FORM, QD FOR THREE WEEKS
  3. OMEPRAZOLE [Suspect]
     Active Substance: OMEPRAZOLE
     Dosage: 20 MG, QD (ONE 20MG TAB A DAY FOR AROUND 3 WEEKS)
     Dates: start: 20230629
  4. ASPIRIN [Concomitant]
     Active Substance: ASPIRIN
     Dosage: UNK
  5. BISOPROLOL [Concomitant]
     Active Substance: BISOPROLOL\BISOPROLOL FUMARATE
     Dosage: UNK

REACTIONS (7)
  - Deafness [Not Recovered/Not Resolved]
  - Anxiety [Recovering/Resolving]
  - Restless legs syndrome [Recovering/Resolving]
  - Bone pain [Recovered/Resolved]
  - Tinnitus [Recovering/Resolving]
  - Headache [Recovering/Resolving]
  - Tongue coated [Recovering/Resolving]

NARRATIVE: CASE EVENT DATE: 20230629
